FAERS Safety Report 17215561 (Version 1)
Quarter: 2019Q4

REPORT INFORMATION
  Report Type: Spontaneous
  Country: FR (occurrence: FR)
  Receive Date: 20191230
  Receipt Date: 20191230
  Transmission Date: 20200122
  Serious: Yes (Other)
  Sender: FDA-Public Use
  Company Number: FR-MYLANLABS-2019M1128375

PATIENT
  Age: 77 Year
  Sex: Male

DRUGS (4)
  1. CYCLOPHOSPHAMIDE. [Suspect]
     Active Substance: CYCLOPHOSPHAMIDE
     Indication: BLASTIC PLASMACYTOID DENDRITIC CELL NEOPLASIA
     Dosage: 375 MG/M2, UNK AT D1
     Route: 065
     Dates: start: 201806, end: 201811
  2. VINCRISTINE [Suspect]
     Active Substance: VINCRISTINE
     Indication: BLASTIC PLASMACYTOID DENDRITIC CELL NEOPLASIA
     Dosage: 1 MG, UNK AT D1
     Route: 065
     Dates: start: 201806, end: 201811
  3. PREDNISONE. [Suspect]
     Active Substance: PREDNISONE
     Indication: BLASTIC PLASMACYTOID DENDRITIC CELL NEOPLASIA
     Dosage: 40 MG/M2, QD FROM D1 TO D5
     Route: 065
     Dates: start: 201806, end: 201811
  4. DOXORUBICIN [Suspect]
     Active Substance: DOXORUBICIN
     Indication: BLASTIC PLASMACYTOID DENDRITIC CELL NEOPLASIA
     Dosage: 25 MG/M2, UNK AT D1
     Route: 065
     Dates: start: 201806, end: 201811

REACTIONS (4)
  - Skin lesion [Recovering/Resolving]
  - Therapy non-responder [Unknown]
  - Product use in unapproved indication [Unknown]
  - Blastic plasmacytoid dendritic cell neoplasia [Unknown]
